FAERS Safety Report 9710238 (Version 1)
Quarter: 2013Q4

REPORT INFORMATION
  Report Type: Spontaneous
  Country: IN (occurrence: IN)
  Receive Date: 20131126
  Receipt Date: 20131126
  Transmission Date: 20140711
  Serious: Yes (Other)
  Sender: FDA-Public Use
  Company Number: IN-JNJFOC-20131111449

PATIENT
  Sex: 0

DRUGS (5)
  1. DOXORUBICIN [Suspect]
     Indication: HODGKIN^S DISEASE
     Dosage: 4-6 CYCLES
     Route: 042
  2. BLEOMYCIN [Suspect]
     Indication: HODGKIN^S DISEASE
     Dosage: 4-6 CYCLES
     Route: 065
  3. VINBLASTINE [Suspect]
     Indication: HODGKIN^S DISEASE
     Dosage: 4-6 CYCLES
     Route: 065
  4. DACARBAZINE [Suspect]
     Indication: HODGKIN^S DISEASE
     Dosage: 4-6 CYCLES
     Route: 065
  5. RADIATION THERAPY NOS [Suspect]
     Indication: HODGKIN^S DISEASE
     Dosage: 25.2 GY /14 FRACTIONS AND 30.6 GY/19 FRACTIONS
     Route: 065

REACTIONS (3)
  - Pulmonary toxicity [Unknown]
  - Mucosal inflammation [Unknown]
  - Dermatitis [Unknown]
